FAERS Safety Report 9332608 (Version 2)
Quarter: 2014Q2

REPORT INFORMATION
  Report Type: Report from Study
  Country: CN (occurrence: CN)
  Receive Date: 20130606
  Receipt Date: 20140422
  Transmission Date: 20141212
  Serious: Yes (Other)
  Sender: FDA-Public Use
  Company Number: CN-ROCHE-1233403

PATIENT
  Age: 65 Year
  Sex: Male
  Weight: 60 kg

DRUGS (4)
  1. AVASTIN [Suspect]
     Indication: COLON CANCER METASTATIC
     Route: 042
     Dates: start: 20121205, end: 201301
  2. AVASTIN [Suspect]
     Dosage: RE-STARTED
     Route: 042
  3. AVASTIN [Suspect]
     Dosage: RE-STARTED
     Route: 042
     Dates: start: 20140328
  4. ELOXATIN [Concomitant]

REACTIONS (4)
  - Ascites [Recovered/Resolved]
  - Oedema peripheral [Recovered/Resolved]
  - Pyrexia [Recovered/Resolved]
  - Pneumonia [Recovering/Resolving]
